FAERS Safety Report 22282416 (Version 2)
Quarter: 2023Q2

REPORT INFORMATION
  Report Type: Report from Study
  Country: MX (occurrence: MX)
  Receive Date: 20230504
  Receipt Date: 20230516
  Transmission Date: 20230721
  Serious: Yes (Hospitalization)
  Sender: FDA-Public Use
  Company Number: MX-002147023-NVSC2023MX098550

PATIENT
  Age: 34 Year
  Sex: Female
  Weight: 50 kg

DRUGS (2)
  1. FEMARA [Suspect]
     Active Substance: LETROZOLE
     Indication: Breast cancer
     Dosage: 1 DOSAGE FORM (2.5 MG), QD (PRESCRIBED BY PHYSICIAN)
     Route: 048
     Dates: start: 20230406
  2. ZOLADEX [Concomitant]
     Active Substance: GOSERELIN ACETATE
     Indication: Breast cancer
     Dosage: 1 DOSAGE FORM, Q3MO (FORMULATION: MPOULET)
     Route: 030
     Dates: start: 202206

REACTIONS (4)
  - Device related infection [Recovered/Resolved]
  - Pyrexia [Recovered/Resolved]
  - Gastrooesophageal reflux disease [Not Recovered/Not Resolved]
  - Nausea [Not Recovered/Not Resolved]

NARRATIVE: CASE EVENT DATE: 20230406
